FAERS Safety Report 21179494 (Version 3)
Quarter: 2022Q3

REPORT INFORMATION
  Report Type: Report from Study
  Country: US (occurrence: US)
  Receive Date: 20220805
  Receipt Date: 20220824
  Transmission Date: 20221027
  Serious: Yes (Hospitalization, Other)
  Sender: FDA-Public Use
  Company Number: US-NOVARTISPH-NVSC2022US174993

PATIENT
  Age: 70 Year
  Sex: Male
  Weight: 73 kg

DRUGS (2)
  1. PLUVICTO [Suspect]
     Active Substance: LUTETIUM LU-177 VIPIVOTIDE TETRAXETAN
     Indication: Hormone-refractory prostate cancer
     Dosage: UNK (RECEIVED 2 INJECTION DOSES)
     Route: 065
  2. PLUVICTO [Suspect]
     Active Substance: LUTETIUM LU-177 VIPIVOTIDE TETRAXETAN
     Dosage: 105.55 MCI
     Route: 042
     Dates: start: 20220622, end: 20220622

REACTIONS (9)
  - Cerebrovascular accident [Unknown]
  - Thrombocytopenia [Unknown]
  - Hypertensive angiopathy [Recovering/Resolving]
  - Chills [Unknown]
  - Mental status changes [Unknown]
  - Pyrexia [Unknown]
  - Vomiting [Unknown]
  - Proctitis [Unknown]
  - Ill-defined disorder [Unknown]

NARRATIVE: CASE EVENT DATE: 20220730
